FAERS Safety Report 7387213-4 (Version None)
Quarter: 2011Q1

REPORT INFORMATION
  Report Type: 
  Country: None (occurrence: None)
  Receive Date: 20110331
  Receipt Date: 20110323
  Transmission Date: 20110831
  Serious: Yes (Other)
  Sender: FDA-Public Use
  Company Number: US-ASTRAZENECA-2011SE16613

PATIENT
  Age: 58 Year
  Sex: Female
  Weight: 74.8 kg

DRUGS (9)
  1. HYDROXYZINE [Concomitant]
     Indication: PRURITUS
     Dosage: 25 MG, AS NEEDED
  2. CELEXA [Concomitant]
  3. SPIRALACTONE [Concomitant]
  4. SEROQUEL [Suspect]
     Indication: ANXIETY
     Route: 048
  5. DICLOFFAZINE [Concomitant]
  6. LEVOTHYROXINE SODIUM [Concomitant]
     Indication: HYPERTHYROIDISM
  7. NEURONTIN [Concomitant]
  8. LACTULOSE [Concomitant]
     Dosage: 3 TSP, THREE TIMES A DAY
  9. CA WITH VIT D [Concomitant]

REACTIONS (1)
  - LIVER DISORDER [None]
